FAERS Safety Report 7232514-3 (Version None)
Quarter: 2011Q1

REPORT INFORMATION
  Report Type: 
  Country: None (occurrence: None)
  Receive Date: 20110119
  Receipt Date: 20110110
  Transmission Date: 20110831
  Serious: Yes (Hospitalization)
  Sender: FDA-Public Use
  Company Number: US-US-EMD SERONO, INC.-7025072

PATIENT
  Sex: Female

DRUGS (2)
  1. REBIF [Suspect]
     Indication: MULTIPLE SCLEROSIS
     Route: 058
     Dates: start: 20101022, end: 20101025
  2. LORTAB [Concomitant]

REACTIONS (5)
  - PNEUMONIA [None]
  - NAUSEA [None]
  - VOMITING [None]
  - DEHYDRATION [None]
  - BRONCHITIS [None]
